FAERS Safety Report 10723831 (Version 1)
Quarter: 2015Q1

REPORT INFORMATION
  Report Type: Spontaneous
  Country: US (occurrence: None)
  Receive Date: 20150114
  Receipt Date: 20150114
  Transmission Date: 20150721
  Serious: Yes (Hospitalization)
  Sender: FDA-Public Use
  Company Number: COL_18886_2015

PATIENT
  Age: 2 Year
  Sex: Male

DRUGS (1)
  1. CHILDRENS SILLY STRAWBERRY [Suspect]
     Active Substance: SODIUM MONOFLUOROPHOSPHATE
     Indication: PRODUCT USED FOR UNKNOWN INDICATION
     Dosage: HALF A TUBE/ONCE/ORAL
     Route: 048
     Dates: end: 20150102

REACTIONS (5)
  - Dehydration [None]
  - Accidental exposure to product by child [None]
  - Lethargy [None]
  - Malaise [None]
  - Hypoglycaemia [None]

NARRATIVE: CASE EVENT DATE: 20150102
